FAERS Safety Report 24838905 (Version 3)
Quarter: 2025Q1

REPORT INFORMATION
  Report Type: Report from Study
  Country: US (occurrence: US)
  Receive Date: 20250114
  Receipt Date: 20250203
  Transmission Date: 20250408
  Serious: No
  Sender: ABBVIE
  Company Number: US-ABBVIE-6074539

PATIENT
  Age: 61 Year
  Sex: Female
  Weight: 56.699 kg

DRUGS (1)
  1. CREON [Suspect]
     Active Substance: PANCRELIPASE AMYLASE\PANCRELIPASE LIPASE\PANCRELIPASE PROTEASE
     Indication: Malabsorption
     Route: 048
     Dates: start: 20250102

REACTIONS (4)
  - Weight decreased [Not Recovered/Not Resolved]
  - Acquired oesophageal web [Unknown]
  - Hiatus hernia [Recovered/Resolved]
  - Malabsorption [Unknown]

NARRATIVE: CASE EVENT DATE: 20250101
